FAERS Safety Report 13444696 (Version 2)
Quarter: 2017Q3

REPORT INFORMATION
  Report Type: Spontaneous
  Country: FR (occurrence: FR)
  Receive Date: 20170414
  Receipt Date: 20170725
  Transmission Date: 20171127
  Serious: Yes (Hospitalization)
  Sender: FDA-Public Use
  Company Number: FR-PFIZER INC-2017163825

PATIENT
  Age: 22 Year
  Sex: Female

DRUGS (2)
  1. CYTOTEC [Suspect]
     Active Substance: MISOPROSTOL
     Indication: ABORTION INDUCED
     Dosage: 400 UG, 1X/DAY
     Route: 067
     Dates: start: 19990503, end: 19990503
  2. MIFEGYNE [Suspect]
     Active Substance: MIFEPRISTONE
     Indication: ABORTION INDUCED
     Dosage: UNK
     Route: 048
     Dates: start: 19990501, end: 19990501

REACTIONS (3)
  - Salpingitis [Recovering/Resolving]
  - Product use in unapproved indication [Unknown]
  - Vaginitis gardnerella [Recovering/Resolving]

NARRATIVE: CASE EVENT DATE: 19990503
